FAERS Safety Report 5905494-8 (Version None)
Quarter: 2008Q4

REPORT INFORMATION
  Report Type: 
  Country: None (occurrence: None)
  Receive Date: 20081002
  Receipt Date: 20080922
  Transmission Date: 20090506
  Serious: Yes (Hospitalization)
  Sender: FDA-Public Use
  Company Number: US-JNJFOC-20081000038

PATIENT
  Sex: Male
  Weight: 88 kg

DRUGS (6)
  1. FLEXERIL [Suspect]
     Indication: BACK PAIN
     Route: 048
  2. FLEXERIL [Suspect]
     Indication: NECK PAIN
     Dosage: AS NEEDED
     Route: 048
  3. DURAGESIC-100 [Concomitant]
     Indication: PAIN
     Route: 062
  4. TENORMIN [Concomitant]
     Indication: BLOOD PRESSURE ABNORMAL
     Route: 048
  5. KLONOPIN [Concomitant]
     Indication: ANXIETY
     Route: 048
  6. XANAX [Concomitant]
     Indication: DEPRESSION
     Route: 048

REACTIONS (5)
  - CARDIAC FAILURE [None]
  - DEPRESSION [None]
  - INCORRECT DRUG ADMINISTRATION DURATION [None]
  - SINUS DISORDER [None]
  - SUICIDE ATTEMPT [None]
